FAERS Safety Report 9236902 (Version 2)
Quarter: 2013Q3

REPORT INFORMATION
  Report Type: Spontaneous
  Country: US (occurrence: US)
  Receive Date: 20130417
  Receipt Date: 20130930
  Transmission Date: 20140515
  Serious: Yes (Death, Other)
  Sender: FDA-Public Use
  Company Number: US-BRISTOL-MYERS SQUIBB COMPANY-18766097

PATIENT
  Sex: Male

DRUGS (2)
  1. BYETTA [Suspect]
     Indication: TYPE 2 DIABETES MELLITUS
     Dosage: THERAPY UNTIL 15NOV11
     Dates: start: 20060217, end: 20111115
  2. JANUVIA [Suspect]
     Indication: TYPE 2 DIABETES MELLITUS
     Dosage: 11MAY12,JUN12
     Dates: start: 20120511, end: 201206

REACTIONS (1)
  - Pancreatic carcinoma [Fatal]
